FAERS Safety Report 17165181 (Version 2)
Quarter: 2020Q2

REPORT INFORMATION
  Report Type: Report from Study
  Country: FR (occurrence: FR)
  Receive Date: 20191217
  Receipt Date: 20200609
  Transmission Date: 20200713
  Serious: Yes (Death, Hospitalization, Other)
  Sender: FDA-Public Use
  Company Number: FR-MYLANLABS-2019M1123418

PATIENT

DRUGS (4)
  1. MITOXANTRONE [Suspect]
     Active Substance: MITOXANTRONE HYDROCHLORIDE
     Indication: ACUTE MYELOID LEUKAEMIA RECURRENT
     Dosage: 12 MILLIGRAM/SQ. METER, QD
     Route: 042
     Dates: start: 20150627, end: 20150629
  2. CYTARABINE. [Suspect]
     Active Substance: CYTARABINE
     Indication: ACUTE MYELOID LEUKAEMIA RECURRENT
     Dosage: 200 MILLIGRAM/SQ. METER, QD
     Route: 042
     Dates: start: 20150627, end: 20150701
  3. GEMTUZUMAB OZOGAMICIN [Suspect]
     Active Substance: GEMTUZUMAB OZOGAMICIN
     Indication: ACUTE MYELOID LEUKAEMIA RECURRENT
     Dosage: 3 MILLIGRAM/SQ. METER, QD
     Route: 042
     Dates: start: 20150627, end: 20150703
  4. DEFITELIO [Suspect]
     Active Substance: DEFIBROTIDE SODIUM
     Indication: VENOOCCLUSIVE LIVER DISEASE
     Dosage: 25 MG/KG, QD
     Route: 065
     Dates: start: 20150723, end: 20150810

REACTIONS (2)
  - Enterococcal infection [Fatal]
  - Incorrect product administration duration [Unknown]

NARRATIVE: CASE EVENT DATE: 20150723
